FAERS Safety Report 5365673-8 (Version None)
Quarter: 2007Q2

REPORT INFORMATION
  Report Type: 
  Country: None (occurrence: None)
  Receive Date: 20070621
  Receipt Date: 20070611
  Transmission Date: 20071010
  Serious: Yes (Hospitalization, Other)
  Sender: FDA-Public Use
  Company Number: US-ELI_LILLY_AND_COMPANY-US200706002293

PATIENT
  Age: 62 Year
  Sex: Female

DRUGS (1)
  1. HUMALOG [Suspect]
     Dosage: 2 U, UNK
     Dates: start: 20050101

REACTIONS (7)
  - BLOOD GLUCOSE DECREASED [None]
  - COLLAPSE OF LUNG [None]
  - FALL [None]
  - FATIGUE [None]
  - INCORRECT DOSE ADMINISTERED [None]
  - SPINAL FRACTURE [None]
  - UPPER LIMB FRACTURE [None]
